FAERS Safety Report 7587695-9 (Version None)
Quarter: 2011Q3

REPORT INFORMATION
  Report Type: 
  Country: None (occurrence: None)
  Receive Date: 20110704
  Receipt Date: 20110620
  Transmission Date: 20111222
  Serious: Yes (Other)
  Sender: FDA-Public Use
  Company Number: IN-ELI_LILLY_AND_COMPANY-IN201106007009

PATIENT
  Age: 82 Year
  Sex: Male

DRUGS (6)
  1. LORAZEPAM [Concomitant]
     Dosage: 4 MG, QD
  2. DIVALPROEX SODIUM [Concomitant]
     Dosage: 250 MG, EACH EVENING
  3. LORAZEPAM [Concomitant]
     Indication: BIPOLAR DISORDER
     Dosage: 1 MG, PRN
  4. OLANZAPINE [Suspect]
     Indication: BIPOLAR DISORDER
     Dosage: 5 MG, EACH EVENING
  5. OLANZAPINE [Suspect]
     Dosage: 10 MG, EACH EVENING
  6. LORAZEPAM [Concomitant]
     Dosage: 2 MG, EACH EVENING

REACTIONS (1)
  - DELIRIUM [None]
